FAERS Safety Report 15861433 (Version 1)
Quarter: 2019Q1

REPORT INFORMATION
  Report Type: Report from Study
  Country: US (occurrence: US)
  Receive Date: 20190124
  Receipt Date: 20190124
  Transmission Date: 20190417
  Serious: No
  Sender: FDA-Public Use
  Company Number: US-ROCHE-2251468

PATIENT
  Age: 59 Year
  Sex: Female
  Weight: 62.2 kg

DRUGS (4)
  1. TYLENOL [Concomitant]
     Active Substance: ACETAMINOPHEN
     Dosage: ONGOING:UNKNOWN
     Route: 065
  2. ZYRTEC [Concomitant]
     Active Substance: CETIRIZINE HYDROCHLORIDE
     Dosage: ONGOING:UNKNOWN
     Route: 065
  3. OCREVUS [Suspect]
     Active Substance: OCRELIZUMAB
     Dosage: FULL DOSE
     Route: 065
     Dates: start: 20190116
  4. OCREVUS [Suspect]
     Active Substance: OCRELIZUMAB
     Indication: RELAPSING MULTIPLE SCLEROSIS
     Dosage: ONGOING:YES
     Route: 065
     Dates: start: 2018

REACTIONS (3)
  - Nasopharyngitis [Not Recovered/Not Resolved]
  - Nasal discharge discolouration [Not Recovered/Not Resolved]
  - Body temperature decreased [Not Recovered/Not Resolved]

NARRATIVE: CASE EVENT DATE: 20190120
